FAERS Safety Report 5770044-6 (Version None)
Quarter: 2008Q2

REPORT INFORMATION
  Report Type: 
  Country: None (occurrence: None)
  Receive Date: 20080613
  Receipt Date: 20080416
  Transmission Date: 20081010
  Serious: No
  Sender: FDA-Public Use
  Company Number: US-ABBOTT-08P-163-0447667-00

PATIENT
  Sex: Female

DRUGS (3)
  1. HUMIRA [Suspect]
     Indication: CROHN'S DISEASE
     Route: 058
     Dates: start: 20080325, end: 20080325
  2. HUMIRA [Suspect]
     Route: 058
     Dates: start: 20080409, end: 20080409
  3. HUMIRA [Suspect]
     Route: 058
     Dates: start: 20080423

REACTIONS (5)
  - ARTHRALGIA [None]
  - COUGH [None]
  - NAUSEA [None]
  - PYREXIA [None]
  - RHINORRHOEA [None]
